FAERS Safety Report 15450709 (Version 3)
Quarter: 2018Q4

REPORT INFORMATION
  Report Type: Spontaneous
  Country: US (occurrence: US)
  Receive Date: 20181001
  Receipt Date: 20181022
  Transmission Date: 20190204
  Serious: Yes (Death, Hospitalization, Other)
  Sender: FDA-Public Use
  Company Number: PHEH2018US041193

PATIENT
  Sex: Male

DRUGS (3)
  1. IMATINIB. [Suspect]
     Active Substance: IMATINIB MESYLATE
     Indication: PRODUCT USED FOR UNKNOWN INDICATION
     Dosage: 400 MG, QD
     Route: 065
     Dates: start: 20180829, end: 20180831
  2. IMATINIB. [Suspect]
     Active Substance: IMATINIB MESYLATE
     Dosage: 800 MG, QD
     Route: 065
     Dates: start: 20180831, end: 20180906
  3. IMATINIB. [Suspect]
     Active Substance: IMATINIB MESYLATE
     Dosage: 400 MG, BID
     Route: 065
     Dates: start: 20180906, end: 20180911

REACTIONS (8)
  - Agitation [Unknown]
  - Malignant neoplasm progression [Fatal]
  - Testicular germ cell cancer metastatic [Fatal]
  - Restlessness [Unknown]
  - Cardiopulmonary failure [Unknown]
  - Neuropathy peripheral [Unknown]
  - Respiratory failure [Unknown]
  - Hypoxia [Unknown]
